FAERS Safety Report 4673786-9 (Version None)
Quarter: 2005Q2

REPORT INFORMATION
  Report Type: 
  Country: None (occurrence: None)
  Receive Date: 20050523
  Receipt Date: 20040312
  Transmission Date: 20051028
  Serious: Yes (Other)
  Sender: FDA-Public Use
  Company Number: 10050995-NA01-1

PATIENT

DRUGS (1)
  1. LACTATED RINGER'S [Suspect]
     Dosage: USED TO CYCLE DIALYSIS MACHINES
     Dates: start: 20040312

REACTIONS (1)
  - MEDICATION ERROR [None]
